FAERS Safety Report 4772809-6 (Version None)
Quarter: 2005Q3

REPORT INFORMATION
  Report Type: 
  Country: None (occurrence: None)
  Receive Date: 20050916
  Receipt Date: 20050831
  Transmission Date: 20060218
  Serious: Yes (Other)
  Sender: FDA-Public Use
  Company Number: 8011589

PATIENT
  Age: 31 Year
  Sex: Male

DRUGS (8)
  1. KEPPRA [Suspect]
     Indication: CONVULSION
     Dosage: 500 MG 2/D
     Dates: start: 20050801, end: 20050815
  2. CLINDAMYCIN HCL [Suspect]
     Indication: TOXOPLASMOSIS
     Dosage: 600 MG 4/D
     Dates: start: 20050729, end: 20050815
  3. RIFAMPICIN [Concomitant]
  4. ISONIAZID [Concomitant]
  5. PYRAZINAMIDE [Concomitant]
  6. DARAPRIM [Concomitant]
  7. OMEPRAZOLE [Concomitant]
  8. LEUCOVORINE [Concomitant]

REACTIONS (2)
  - PANCREATITIS [None]
  - STEVENS-JOHNSON SYNDROME [None]
